FAERS Safety Report 10114500 (Version 2)
Quarter: 2014Q2

REPORT INFORMATION
  Report Type: Spontaneous
  Country: IT (occurrence: IT)
  Receive Date: 20140426
  Receipt Date: 20140501
  Transmission Date: 20141212
  Serious: Yes (Hospitalization)
  Sender: FDA-Public Use
  Company Number: IT-ACCORD-023372

PATIENT
  Age: 43 Year
  Sex: Male

DRUGS (1)
  1. DOCETAXEL [Suspect]
     Indication: BREAST CANCER
     Route: 042
     Dates: start: 20140211

REACTIONS (2)
  - Neutropenia [Recovered/Resolved]
  - Fungal infection [Recovered/Resolved]
